FAERS Safety Report 7903571-3 (Version None)
Quarter: 2011Q4

REPORT INFORMATION
  Report Type: 
  Country: None (occurrence: None)
  Receive Date: 20111109
  Receipt Date: 20111109
  Transmission Date: 20120403
  Serious: Yes (Hospitalization, Other)
  Sender: FDA-Public Use
  Company Number: None

PATIENT
  Age: 46 Year
  Sex: Male
  Weight: 140.61 kg

DRUGS (5)
  1. ATIVAN [Concomitant]
     Route: 048
  2. MAGNESIUM HYDROXIDE TAB [Concomitant]
     Route: 048
  3. NEXIUM [Concomitant]
     Route: 048
  4. ARIXTRA [Suspect]
     Indication: THROMBOSIS PROPHYLAXIS
     Dosage: 10MG
     Route: 059
     Dates: start: 20110301, end: 20110501
  5. ANDROGEL [Concomitant]
     Route: 048

REACTIONS (6)
  - ABDOMINAL DISCOMFORT [None]
  - DIARRHOEA [None]
  - PALPITATIONS [None]
  - OESOPHAGEAL SPASM [None]
  - GASTROOESOPHAGEAL REFLUX DISEASE [None]
  - TACHYCARDIA [None]
